FAERS Safety Report 25217368 (Version 1)
Quarter: 2025Q2

REPORT INFORMATION
  Report Type: Spontaneous
  Country: PT (occurrence: PT)
  Receive Date: 20250420
  Receipt Date: 20250420
  Transmission Date: 20250716
  Serious: Yes (Other)
  Sender: AUROBINDO
  Company Number: PT-ORESUND-25OPAJY0207P

PATIENT
  Age: 37 Year
  Sex: Female

DRUGS (6)
  1. PREDNISOLONE [Suspect]
     Active Substance: PREDNISOLONE
     Indication: Behcet^s syndrome
     Route: 065
  2. PREDNISOLONE [Suspect]
     Active Substance: PREDNISOLONE
     Route: 065
  3. COLCHICINE [Suspect]
     Active Substance: COLCHICINE
     Indication: Behcet^s syndrome
     Route: 065
  4. METHOTREXATE [Suspect]
     Active Substance: METHOTREXATE
     Indication: Product used for unknown indication
     Route: 065
  5. ADALIMUMAB [Suspect]
     Active Substance: ADALIMUMAB
     Indication: Product used for unknown indication
     Route: 065
  6. METHYLPREDNISOLONE [Suspect]
     Active Substance: METHYLPREDNISOLONE
     Indication: Product used for unknown indication
     Route: 065

REACTIONS (10)
  - Iridocyclitis [Recovering/Resolving]
  - Optic neuropathy [Recovering/Resolving]
  - Autoimmune disorder [Recovering/Resolving]
  - Symptom recurrence [Recovering/Resolving]
  - Mouth ulceration [Recovering/Resolving]
  - Visual acuity reduced [Recovering/Resolving]
  - Somatosensory evoked potentials [Recovering/Resolving]
  - Optic nerve disorder [Recovering/Resolving]
  - Therapy change [Unknown]
  - Drug ineffective [Unknown]
